FAERS Safety Report 20077413 (Version 2)
Quarter: 2021Q4

REPORT INFORMATION
  Report Type: Spontaneous
  Country: US (occurrence: US)
  Receive Date: 20211116
  Receipt Date: 20211221
  Transmission Date: 20220303
  Serious: Yes (Other)
  Sender: FDA-Public Use
  Company Number: US-INSUD PHARMA-2111US02621

PATIENT

DRUGS (5)
  1. PROGESTERONE [Suspect]
     Active Substance: PROGESTERONE
     Indication: Heavy menstrual bleeding
     Dosage: 100 MG, ONCE DAILY
     Route: 048
     Dates: start: 20211013, end: 20211028
  2. PROGESTERONE [Suspect]
     Active Substance: PROGESTERONE
     Dosage: PREVIOUSLY USED ACORN PROGESTERONE 200 MG INITIALLY FOR 1.5 MONTHS THEN DECREASED TO 100 MG/DAY FOR
     Route: 048
  3. PROGESTERONE [Suspect]
     Active Substance: PROGESTERONE
     Dosage: PREVIOUSLY USED ACORN PROGESTERONE 200 MG INITIALLY FOR 1.5 MONTHS
     Route: 048
     Dates: start: 202008
  4. LEVOTHYROXINE [Concomitant]
     Active Substance: LEVOTHYROXINE
     Dosage: 150 MICROGRAM, QD FOR YEARS
  5. LIOTHYRONINE SODIUM [Concomitant]
     Active Substance: LIOTHYRONINE SODIUM
     Dosage: 25 MICROGRAM, QD FOR YEARS

REACTIONS (9)
  - Intraductal proliferative breast lesion [Not Recovered/Not Resolved]
  - Breast mass [Not Recovered/Not Resolved]
  - Breast tenderness [Recovered/Resolved]
  - Fatigue [Recovered/Resolved]
  - Dyspnoea [Recovered/Resolved]
  - Pain [Recovered/Resolved]
  - Headache [Recovered/Resolved]
  - Product use in unapproved indication [Unknown]
  - Product substitution issue [Unknown]

NARRATIVE: CASE EVENT DATE: 20210101
